FAERS Safety Report 8616391-1 (Version None)
Quarter: 2012Q3

REPORT INFORMATION
  Report Type: 
  Country: None (occurrence: None)
  Receive Date: 20120815
  Receipt Date: 20120815
  Transmission Date: 20120928
  Serious: Yes (Hospitalization)
  Sender: FDA-Public Use
  Company Number: None

PATIENT
  Age: 47 Year
  Sex: Male

DRUGS (3)
  1. VICTRELIS [Suspect]
     Dosage: 800 MG Q 8HRS
  2. RIBASPHERE [Suspect]
     Dosage: 600MG PO
     Route: 048
  3. PEGASYS [Suspect]
     Indication: HEPATITIS C
     Dosage: 180MCG SC Q WEEK
     Route: 058
     Dates: start: 20120719

REACTIONS (4)
  - PAIN [None]
  - FATIGUE [None]
  - RECTAL HAEMORRHAGE [None]
  - BLOOD COUNT ABNORMAL [None]
